FAERS Safety Report 6150523-2 (Version None)
Quarter: 2009Q2

REPORT INFORMATION
  Report Type: 
  Country: None (occurrence: None)
  Receive Date: 20090409
  Receipt Date: 20090401
  Transmission Date: 20091009
  Serious: Yes (Other)
  Sender: FDA-Public Use
  Company Number: US-AMGEN-US339166

PATIENT
  Sex: Female

DRUGS (1)
  1. NPLATE [Suspect]
     Dates: start: 20081126

REACTIONS (1)
  - HOSPICE CARE [None]
